FAERS Safety Report 9310627 (Version 3)
Quarter: 2014Q1

REPORT INFORMATION
  Report Type: Spontaneous
  Country: US (occurrence: US)
  Receive Date: 20130527
  Receipt Date: 20140107
  Transmission Date: 20141002
  Serious: Yes (Other)
  Sender: FDA-Public Use
  Company Number: US-B.I. PHARMACEUTICALS,INC./RIDGEFIELD-2013-BI-13842BP

PATIENT
  Age: 51 Year
  Sex: Male
  Weight: 97 kg

DRUGS (8)
  1. COMBIVENT [Suspect]
     Indication: CHRONIC OBSTRUCTIVE PULMONARY DISEASE
     Dosage: STRENGTH: 20 MCG / 100 MCG; DAILY DOSE: 160 MCG/800 MCG
     Route: 055
     Dates: start: 20130430
  2. CITALOPRAM [Concomitant]
     Indication: DEPRESSION
     Dosage: 40 MG
     Route: 048
  3. LEVOTHYROXINE [Concomitant]
     Indication: AUTOIMMUNE THYROIDITIS
     Dosage: 175 MCG
     Route: 048
  4. TRIHEXYPHENIDYL [Concomitant]
     Indication: PARKINSON^S DISEASE
     Dosage: 6 MG
     Route: 048
  5. ABILIFY [Concomitant]
     Indication: DEPRESSION
     Dosage: 15 MG
     Route: 048
  6. PERCOCET [Concomitant]
     Indication: ARTHRALGIA
     Dosage: STRENGTH: 10/325 MG;
     Route: 048
  7. CREON [Concomitant]
     Dosage: 54000 U
     Route: 048
  8. GABAPENTIN [Concomitant]
     Indication: NEUROPATHY PERIPHERAL
     Dosage: 900 MG
     Route: 048

REACTIONS (5)
  - Grand mal convulsion [Not Recovered/Not Resolved]
  - Cough [Recovered/Resolved]
  - Dysphonia [Not Recovered/Not Resolved]
  - Memory impairment [Not Recovered/Not Resolved]
  - Product quality issue [Not Recovered/Not Resolved]
